FAERS Safety Report 10866908 (Version 2)
Quarter: 2015Q4

REPORT INFORMATION
  Report Type: Spontaneous
  Country: US (occurrence: US)
  Receive Date: 20150225
  Receipt Date: 20151109
  Transmission Date: 20160304
  Serious: Yes (Hospitalization)
  Sender: FDA-Public Use
  Company Number: US-ROCHE-1543315

PATIENT
  Age: 20 Year
  Sex: Female

DRUGS (1)
  1. NUTROPIN [Suspect]
     Active Substance: SOMATROPIN
     Indication: SUICIDAL IDEATION
     Route: 058
     Dates: start: 20141022

REACTIONS (2)
  - Suicide attempt [Unknown]
  - Depressed mood [Unknown]

NARRATIVE: CASE EVENT DATE: 20150131
